FAERS Safety Report 24208059 (Version 1)
Quarter: 2024Q3

REPORT INFORMATION
  Report Type: Report from Study
  Country: US (occurrence: US)
  Receive Date: 20240814
  Receipt Date: 20240814
  Transmission Date: 20241017
  Serious: Yes (Hospitalization)
  Sender: RECORDATI
  Company Number: US-RECORDATI RARE DISEASE INC.-2024006114

PATIENT

DRUGS (1)
  1. CARBAGLU [Suspect]
     Active Substance: CARGLUMIC ACID
     Indication: Product used for unknown indication
     Dosage: 400 MILLIGRAM, BID (DISSOLVE 2 TABLETS IN 2.5 ML OF WATER PER TABLET AND TAKE TWO TIMES A DAY), TAKI

REACTIONS (1)
  - Hospitalisation [Unknown]
